FAERS Safety Report 6025307-6 (Version None)
Quarter: 2008Q4

REPORT INFORMATION
  Report Type: 
  Country: None (occurrence: None)
  Receive Date: 20081231
  Receipt Date: 20081224
  Transmission Date: 20090506
  Serious: Yes (Other)
  Sender: FDA-Public Use
  Company Number: PHHY2008FR31824

PATIENT
  Sex: Male

DRUGS (2)
  1. TASIGNA [Suspect]
     Indication: LEUKAEMIA
     Dosage: 800 MG, QD
     Dates: start: 20081021
  2. NORDAZ [Concomitant]
     Indication: SLEEP DISORDER
     Dosage: 7.5MG

REACTIONS (4)
  - ASTHMA [None]
  - CRYING [None]
  - MOOD ALTERED [None]
  - SLEEP DISORDER [None]
